FAERS Safety Report 7557449-8 (Version None)
Quarter: 2011Q2

REPORT INFORMATION
  Report Type: 
  Country: None (occurrence: None)
  Receive Date: 20110620
  Receipt Date: 20110607
  Transmission Date: 20111010
  Serious: Yes (Hospitalization)
  Sender: FDA-Public Use
  Company Number: US-ROCHE-783628

PATIENT
  Sex: Female

DRUGS (4)
  1. BEVACIZUMAB [Suspect]
     Dosage: OVER 30 - 90 MINUTES ON DAY 1, CYCLE 1-6
     Route: 042
     Dates: start: 20101122
  2. PACLITAXEL [Suspect]
     Dosage: OVER 1 HOUR ON DAYS 1, 8 AND 15, LAST DOSE PRIOR TO SAE: 03 JAN 2011, CYCLE 1-6
     Route: 042
     Dates: start: 20101122
  3. CARBOPLATIN [Suspect]
     Dosage: 6 AUC ON DAY 1, CYCLE 1-6, LAST DOSE PRIOR TO SAE: 03 JAN 2011
     Route: 042
     Dates: start: 20101122
  4. BEVACIZUMAB [Suspect]
     Dosage: CYCLE 7-22, OVER 30 -90 MINUTES ON DAY 1, LAST DOSE PRIOR TO SAE: 03 JAN 2011
     Route: 042

REACTIONS (1)
  - SMALL INTESTINAL OBSTRUCTION [None]
